FAERS Safety Report 5152287-8 (Version None)
Quarter: 2006Q4

REPORT INFORMATION
  Report Type: 
  Country: None (occurrence: None)
  Receive Date: 20061116
  Receipt Date: 20061110
  Transmission Date: 20070319
  Serious: Yes (Hospitalization)
  Sender: FDA-Public Use
  Company Number: US-MERCK-0611USA03180

PATIENT
  Age: 47 Year
  Sex: Male

DRUGS (2)
  1. JANUVIA [Suspect]
     Indication: DIABETES MELLITUS
     Route: 048
     Dates: start: 20061001, end: 20061109
  2. QUININE [Concomitant]
     Route: 065

REACTIONS (2)
  - MUSCLE SPASMS [None]
  - RASH [None]
